FAERS Safety Report 7054980-9 (Version None)
Quarter: 2010Q4

REPORT INFORMATION
  Report Type: 
  Country: None (occurrence: None)
  Receive Date: 20101021
  Receipt Date: 20101011
  Transmission Date: 20110411
  Serious: Yes (Other)
  Sender: FDA-Public Use
  Company Number: GB-TEVA-251775ISR

PATIENT
  Age: 42 Year
  Sex: Male

DRUGS (3)
  1. CODEINE SULFATE [Suspect]
     Indication: BACK PAIN
  2. TRAMADOL HCL [Suspect]
     Indication: BACK PAIN
  3. MORPHINE [Suspect]
     Indication: BACK PAIN

REACTIONS (1)
  - HYPOGONADISM [None]
